FAERS Safety Report 17798906 (Version 1)
Quarter: 2020Q2

REPORT INFORMATION
  Report Type: Spontaneous
  Country: PL (occurrence: PL)
  Receive Date: 20200518
  Receipt Date: 20200518
  Transmission Date: 20200714
  Serious: Yes (Other)
  Sender: FDA-Public Use
  Company Number: NVSC2020PL132218

PATIENT
  Sex: Female
  Weight: 48 kg

DRUGS (9)
  1. CARBOPLATIN. [Suspect]
     Active Substance: CARBOPLATIN
     Indication: BREAST CANCER
     Dosage: 540 MG, TIW
     Route: 042
     Dates: start: 20190913, end: 20200124
  2. DEXAVEN [Concomitant]
     Active Substance: DEXAMETHASONE
     Indication: BREAST CANCER
     Dosage: 10 MG, TIW
     Route: 042
     Dates: start: 20190913, end: 20200124
  3. ONDANSETRON [Concomitant]
     Active Substance: ONDANSETRON
     Indication: BREAST CANCER
     Dosage: 8 MG, TIW
     Route: 042
     Dates: start: 20190913, end: 20200124
  4. KADCYLA [Suspect]
     Active Substance: ADO-TRASTUZUMAB EMTANSINE
     Indication: BREAST CANCER
     Dosage: UNK
     Route: 065
     Dates: start: 20200214
  5. PERJETA [Suspect]
     Active Substance: PERTUZUMAB
     Indication: BREAST CANCER
     Dosage: 420 MG, TIW
     Route: 042
     Dates: start: 20190913, end: 20200124
  6. EUTHYROX [Concomitant]
     Active Substance: LEVOTHYROXINE SODIUM
     Indication: PRODUCT USED FOR UNKNOWN INDICATION
     Dosage: UNK
     Route: 065
     Dates: start: 2005
  7. DOCETAXEL. [Suspect]
     Active Substance: DOCETAXEL
     Indication: BREAST CANCER
     Dosage: 90 MG, TIW
     Route: 042
     Dates: start: 20190913, end: 20200124
  8. HERCEPTIN [Suspect]
     Active Substance: TRASTUZUMAB
     Indication: BREAST CANCER
     Dosage: 288 MG, TIW (FREQUENCY TIME: EVERY 3 WEEKS)
     Route: 042
     Dates: start: 20190913, end: 20200124
  9. PEGFILGRASTIM [Concomitant]
     Active Substance: PEGFILGRASTIM
     Indication: BREAST CANCER
     Dosage: 6 MG, Q3W
     Route: 065
     Dates: start: 20190913, end: 20200124

REACTIONS (7)
  - Induration [Unknown]
  - Neoplasm skin [Unknown]
  - Skin induration [Unknown]
  - Rash [Unknown]
  - Off label use [Unknown]
  - Erythema [Unknown]
  - Intentional product use issue [Unknown]
